FAERS Safety Report 6032079-8 (Version None)
Quarter: 2008Q4

REPORT INFORMATION
  Report Type: 
  Country: None (occurrence: None)
  Receive Date: 20081222
  Receipt Date: 20081112
  Transmission Date: 20090506
  Serious: No
  Sender: FDA-Public Use
  Company Number: US-WYE-H06822408

PATIENT
  Age: 80 Year
  Sex: Male

DRUGS (3)
  1. PRISTIQ [Suspect]
     Indication: DEPRESSION
     Dosage: 50 MG 1X PER 1 DAY, ORAL
     Route: 048
     Dates: start: 20081104, end: 20081109
  2. ULTRAM [Concomitant]
  3. LORAZEPAM [Concomitant]

REACTIONS (2)
  - ARTHRITIS [None]
  - BURNING SENSATION [None]
